FAERS Safety Report 4493190-6 (Version None)
Quarter: 2004Q4

REPORT INFORMATION
  Report Type: 
  Country: None (occurrence: None)
  Receive Date: 20041104
  Receipt Date: 20041013
  Transmission Date: 20050328
  Serious: Yes (Disabling)
  Sender: FDA-Public Use
  Company Number: PHHO2004CA14680

PATIENT
  Age: 73 Year
  Sex: Female
  Weight: 47 kg

DRUGS (3)
  1. ZOLEDRONATE VS PLACEBO [Suspect]
     Indication: OSTEOPOROSIS POSTMENOPAUSAL
     Dosage: DOUBLE-BLIND
     Route: 042
     Dates: start: 20020613
  2. CALCIUM [Concomitant]
     Indication: OSTEOPOROSIS POSTMENOPAUSAL
  3. VITAMIN D [Concomitant]
     Indication: OSTEOPOROSIS POSTMENOPAUSAL

REACTIONS (8)
  - ARTHROPATHY [None]
  - CHONDROCALCINOSIS [None]
  - DISEASE PROGRESSION [None]
  - DRUG INEFFECTIVE [None]
  - FALL [None]
  - JOINT EFFUSION [None]
  - OSTEOPOROSIS [None]
  - TIBIA FRACTURE [None]
